FAERS Safety Report 5398721-X (Version None)
Quarter: 2007Q3

REPORT INFORMATION
  Report Type: 
  Country: None (occurrence: None)
  Receive Date: 20070726
  Receipt Date: 20060720
  Transmission Date: 20080115
  Serious: No
  Sender: FDA-Public Use
  Company Number: US-AMGEN-KDL187465

PATIENT
  Sex: Female
  Weight: 112.1 kg

DRUGS (9)
  1. PROCRIT [Suspect]
     Indication: RENAL FAILURE CHRONIC
     Dates: start: 20060614, end: 20060816
  2. DIGOXIN [Concomitant]
  3. ATENOLOL [Concomitant]
  4. CLONIDINE [Concomitant]
  5. INDERAL [Concomitant]
  6. XANAX [Concomitant]
  7. LASIX [Concomitant]
  8. HYDROCODONE BITARTRATE [Concomitant]
  9. SPIRONOLACTONE [Concomitant]

REACTIONS (8)
  - ASTHENIA [None]
  - BURNING SENSATION [None]
  - FATIGUE [None]
  - HEADACHE [None]
  - HYPERSOMNIA [None]
  - INSOMNIA [None]
  - NECK PAIN [None]
  - OEDEMA PERIPHERAL [None]
